FAERS Safety Report 15639211 (Version 1)
Quarter: 2018Q4

REPORT INFORMATION
  Report Type: Spontaneous
  Country: US (occurrence: US)
  Receive Date: 20181120
  Receipt Date: 20181120
  Transmission Date: 20190205
  Serious: No
  Sender: FDA-Public Use
  Company Number: US-JNJFOC-20180344362

PATIENT
  Age: 83 Year
  Sex: Female
  Weight: 49 kg

DRUGS (7)
  1. VOLTAREN [Concomitant]
     Active Substance: DICLOFENAC SODIUM
  2. INDAPAMIDE. [Concomitant]
     Active Substance: INDAPAMIDE
  3. METFORMIN [Concomitant]
     Active Substance: METFORMIN HYDROCHLORIDE
  4. ATENOLOL. [Concomitant]
     Active Substance: ATENOLOL
  5. LOSARTAN. [Concomitant]
     Active Substance: LOSARTAN
  6. FISH OIL [Concomitant]
     Active Substance: FISH OIL
  7. IMBRUVICA [Suspect]
     Active Substance: IBRUTINIB
     Indication: PLASMA CELL LEUKAEMIA
     Route: 048
     Dates: start: 20160825

REACTIONS (3)
  - Product dose omission [Recovered/Resolved]
  - Off label use [Unknown]
  - Product use in unapproved indication [Unknown]

NARRATIVE: CASE EVENT DATE: 20160825
